FAERS Safety Report 15815232 (Version 1)
Quarter: 2019Q1

REPORT INFORMATION
  Report Type: Spontaneous
  Country: SE (occurrence: SE)
  Receive Date: 20190112
  Receipt Date: 20190112
  Transmission Date: 20190417
  Serious: Yes (Hospitalization)
  Sender: FDA-Public Use
  Company Number: SE-ACCORD-101695

PATIENT
  Age: 60 Year
  Sex: Male

DRUGS (3)
  1. SPIRONOLACTONE. [Suspect]
     Active Substance: SPIRONOLACTONE
     Indication: DIABETES MELLITUS
     Dates: start: 20180219, end: 20180301
  2. BISOPROLOL [Concomitant]
     Active Substance: BISOPROLOL
  3. JARDIANCE [Suspect]
     Active Substance: EMPAGLIFLOZIN
     Indication: DIABETES MELLITUS
     Dates: start: 20180219, end: 20180228

REACTIONS (6)
  - Dizziness [Recovered/Resolved with Sequelae]
  - Diplopia [Recovered/Resolved with Sequelae]
  - Vomiting [Recovered/Resolved with Sequelae]
  - Fatigue [Recovered/Resolved with Sequelae]
  - Off label use [Unknown]
  - Thirst [Recovered/Resolved with Sequelae]

NARRATIVE: CASE EVENT DATE: 20180221
